FAERS Safety Report 9967555 (Version 1)
Quarter: 2014Q1

REPORT INFORMATION
  Report Type: Report from Study
  Country: US (occurrence: US)
  Receive Date: 20140305
  Receipt Date: 20140305
  Transmission Date: 20141002
  Serious: No
  Sender: FDA-Public Use
  Company Number: US-ABBVIE-13P-163-1138519-00

PATIENT
  Age: 8 Year
  Sex: Male

DRUGS (3)
  1. HUMIRA [Suspect]
     Indication: JUVENILE IDIOPATHIC ARTHRITIS
     Dates: start: 20130822
  2. EYE DROPS [Concomitant]
     Indication: HYPERTENSION
  3. NAPROXEN [Concomitant]
     Indication: PAIN
     Dosage: LIQUID

REACTIONS (2)
  - Crying [Recovered/Resolved]
  - Injection site pain [Recovered/Resolved]
